FAERS Safety Report 21345025 (Version 1)
Quarter: 2022Q3

REPORT INFORMATION
  Report Type: Spontaneous
  Country: FR (occurrence: None)
  Receive Date: 20220916
  Receipt Date: 20220916
  Transmission Date: 20221027
  Serious: Yes (Hospitalization, Other)
  Sender: FDA-Public Use
  Company Number: 2022A313786

PATIENT
  Age: 26 Year
  Sex: Female

DRUGS (7)
  1. OSIMERTINIB [Suspect]
     Active Substance: OSIMERTINIB
     Indication: Lung adenocarcinoma stage IV
     Dosage: 80 MG DAILY
     Route: 048
  2. AFATINIB [Concomitant]
     Active Substance: AFATINIB
     Indication: Lung adenocarcinoma stage IV
     Dosage: 40MGDAILY
  3. CISPLATIN\PEMETREXED [Concomitant]
     Active Substance: CISPLATIN\PEMETREXED
     Indication: Lung adenocarcinoma stage IV
     Dosage: 6 COURES
  4. PEMETREXED/CARBOPLATIN [Concomitant]
     Indication: Lung adenocarcinoma stage IV
     Dosage: 4 COURES
  5. BEVACIZUMAB/PEMETREXED/CARBOPLATIN [Concomitant]
     Indication: Lung adenocarcinoma stage IV
     Dosage: 4 COURES
     Dates: start: 202009, end: 202107
  6. ATEZOLIZUMAB [Concomitant]
     Active Substance: ATEZOLIZUMAB
     Indication: Lung adenocarcinoma stage IV
     Dosage: 3 COURES
     Dates: start: 202009, end: 202107
  7. GEMCITABINE [Concomitant]
     Active Substance: GEMCITABINE
     Indication: Lung adenocarcinoma stage IV
     Dosage: 6 COURES
     Dates: start: 202009, end: 202107

REACTIONS (3)
  - Drug resistance [Unknown]
  - Malignant neoplasm progression [Unknown]
  - Acquired gene mutation [Unknown]
